FAERS Safety Report 9585872 (Version 1)
Quarter: 2013Q4

REPORT INFORMATION
  Report Type: Spontaneous
  Country: US (occurrence: None)
  Receive Date: 20131001
  Receipt Date: 20131001
  Transmission Date: 20140711
  Serious: Yes (Hospitalization)
  Sender: FDA-Public Use
  Company Number: US-ALKEM-000141

PATIENT
  Age: 76 Year
  Sex: Female

DRUGS (4)
  1. GABAPENTIN [Suspect]
     Indication: DIABETIC NEUROPATHY
  2. ZOLPIDEM (ZOLPIDEM) [Concomitant]
  3. OXYCODONE/APAP (OXYCODONE/APAP) [Concomitant]
  4. GLYBURIDE (GLYBURIDE) [Concomitant]

REACTIONS (9)
  - Akathisia [None]
  - Drug withdrawal syndrome [None]
  - Pain in extremity [None]
  - Anxiety [None]
  - Therapy cessation [None]
  - Confusional state [None]
  - Blood glucose increased [None]
  - Lethargy [None]
  - Off label use [None]
